FAERS Safety Report 5904904-X (Version None)
Quarter: 2008Q4

REPORT INFORMATION
  Report Type: 
  Country: None (occurrence: None)
  Receive Date: 20081001
  Receipt Date: 20080926
  Transmission Date: 20090506
  Serious: Yes (Hospitalization)
  Sender: FDA-Public Use
  Company Number: B0538923A

PATIENT
  Age: 27 Year
  Sex: Female

DRUGS (4)
  1. PAXIL [Suspect]
     Indication: DEPRESSION
     Dosage: 10MG PER DAY
     Route: 048
     Dates: start: 20080819, end: 20080908
  2. PAXIL [Suspect]
     Dosage: 20MG PER DAY
     Route: 048
     Dates: start: 20080909
  3. MYSLEE [Concomitant]
     Dosage: 9TAB PER DAY
     Route: 048
  4. TRAZODONE HCL [Concomitant]
     Dosage: 11TAB PER DAY
     Route: 048

REACTIONS (4)
  - ANXIETY [None]
  - INTENTIONAL OVERDOSE [None]
  - SUICIDAL IDEATION [None]
  - SUICIDE ATTEMPT [None]
